FAERS Safety Report 26215418 (Version 1)
Quarter: 2025Q4

REPORT INFORMATION
  Report Type: Spontaneous
  Country: EU (occurrence: EU)
  Receive Date: 20251231
  Receipt Date: 20251231
  Transmission Date: 20260117
  Serious: Yes (Other)
  Sender: GLAXOSMITHKLINE
  Company Number: None

PATIENT
  Age: 57 Year
  Sex: Male
  Weight: 73.5 kg

DRUGS (2)
  1. LAMOTRIGINE [Suspect]
     Active Substance: LAMOTRIGINE
     Indication: Dystonia
     Dosage: 250 MG (FREQUENCY UNKNOWN)
  2. FYCOMPA [Suspect]
     Active Substance: PERAMPANEL
     Indication: Dystonia
     Dosage: 4 MG, QD

REACTIONS (3)
  - Dystonia [Not Recovered/Not Resolved]
  - Muscle atrophy [Not Recovered/Not Resolved]
  - Off label use [Unknown]

NARRATIVE: CASE EVENT DATE: 20240601
